FAERS Safety Report 8561542-0 (Version None)
Quarter: 2012Q3

REPORT INFORMATION
  Report Type: 
  Country: None (occurrence: None)
  Receive Date: 20120802
  Receipt Date: 20120727
  Transmission Date: 20120928
  Serious: Yes (Hospitalization)
  Sender: FDA-Public Use
  Company Number: US-ABBOTT-12P-163-0962606-00

PATIENT
  Sex: Male
  Weight: 86.26 kg

DRUGS (4)
  1. LUPRON DEPOT [Suspect]
     Indication: PROSTATE CANCER
     Route: 050
     Dates: start: 20120706
  2. PRAVASTATIN [Concomitant]
     Indication: BLOOD CHOLESTEROL INCREASED
     Route: 048
  3. NITROGLYCERIN [Suspect]
     Indication: CHEST DISCOMFORT
     Dosage: DURING HOSPITALIZATION, 2 DOSES
     Dates: start: 20120725, end: 20120725
  4. RADIATION THERAPY [Suspect]
     Indication: PROSTATE CANCER
     Dates: start: 20120723

REACTIONS (3)
  - PARAESTHESIA [None]
  - CHEST DISCOMFORT [None]
  - HEADACHE [None]
